FAERS Safety Report 10089058 (Version 2)
Quarter: 2014Q2

REPORT INFORMATION
  Report Type: Spontaneous
  Country: US (occurrence: US)
  Receive Date: 20140421
  Receipt Date: 20140421
  Transmission Date: 20141212
  Serious: No
  Sender: FDA-Public Use
  Company Number: US-DRREDDYS-USA/USA/13/0035598

PATIENT
  Age: 25 Year
  Sex: Female
  Weight: 54.4 kg

DRUGS (2)
  1. ZENATANE [Suspect]
     Indication: ACNE CYSTIC
     Route: 048
     Dates: start: 20131017
  2. ZENATANE [Suspect]
     Route: 048
     Dates: start: 20131021

REACTIONS (2)
  - Headache [Recovered/Resolved]
  - Dry skin [Not Recovered/Not Resolved]
